FAERS Safety Report 9279106 (Version 2)
Quarter: 2013Q2

REPORT INFORMATION
  Report Type: Spontaneous
  Country: US (occurrence: US)
  Receive Date: 20130508
  Receipt Date: 20130509
  Transmission Date: 20140414
  Serious: No
  Sender: FDA-Public Use
  Company Number: US-PFIZER INC-2013141906

PATIENT
  Age: 27 Year
  Sex: Male
  Weight: 92.97 kg

DRUGS (3)
  1. CELEBREX [Suspect]
     Indication: ARTHRALGIA
     Dosage: 200 MG, 1X/DAY
     Route: 048
     Dates: start: 201305
  2. OSTEO BI-FLEX [Concomitant]
     Indication: ARTHRALGIA
     Dosage: UNK
  3. PINEAPPLE ENZYME [Concomitant]
     Dosage: UNK

REACTIONS (1)
  - Drug ineffective [Unknown]
